FAERS Safety Report 5457617-5 (Version None)
Quarter: 2007Q3

REPORT INFORMATION
  Report Type: 
  Country: None (occurrence: None)
  Receive Date: 20070918
  Receipt Date: 20070913
  Transmission Date: 20080115
  Serious: Yes (Hospitalization)
  Sender: FDA-Public Use
  Company Number: FR-BOEHRINGER INGELHEIM PHARMACEUTICALS, INC.-2006-FF-00444FF

PATIENT
  Age: 79 Year
  Sex: Male

DRUGS (4)
  1. SPIRIVA [Suspect]
     Dates: start: 20060201
  2. FLIXOTIDE [Concomitant]
  3. ATROVENT [Concomitant]
  4. BRICANYL [Concomitant]

REACTIONS (1)
  - OLIGODENDROGLIOMA [None]
